FAERS Safety Report 20978151 (Version 1)
Quarter: 2022Q2

REPORT INFORMATION
  Report Type: Report from Study
  Country: GB (occurrence: GB)
  Receive Date: 20220618
  Receipt Date: 20220618
  Transmission Date: 20220721
  Serious: Yes (Life-Threatening, Hospitalization, Other)
  Sender: FDA-Public Use
  Company Number: GB-BRISTOL-MYERS SQUIBB COMPANY-BMS-2022-039201

PATIENT
  Age: 73 Year
  Sex: Female

DRUGS (2)
  1. ORENCIA [Suspect]
     Active Substance: ABATACEPT
     Indication: Rheumatoid arthritis
     Dosage: 125 MILLIGRAM, QWK
     Route: 058
     Dates: start: 20181102
  2. ORENCIA [Suspect]
     Active Substance: ABATACEPT
     Route: 058
     Dates: start: 201810

REACTIONS (8)
  - Influenza [Unknown]
  - Illness [Unknown]
  - Lower respiratory tract infection [Not Recovered/Not Resolved]
  - Pneumonia [Recovering/Resolving]
  - Coma [Unknown]
  - Pulmonary embolism [Unknown]
  - Pulmonary oedema [Unknown]
  - Atrial fibrillation [Unknown]

NARRATIVE: CASE EVENT DATE: 20220201
